FAERS Safety Report 10688975 (Version 2)
Quarter: 2015Q1

REPORT INFORMATION
  Report Type: Spontaneous
  Country: US (occurrence: US)
  Receive Date: 20150103
  Receipt Date: 20150103
  Transmission Date: 20150720
  Serious: No
  Sender: FDA-Public Use
  Company Number: US-BRISTOL-MYERS SQUIBB COMPANY-21584586

PATIENT
  Age: 63 Year
  Sex: Male

DRUGS (5)
  1. OMEPRAZOLE. [Concomitant]
     Active Substance: OMEPRAZOLE
  2. VITAMIN D                          /00107901/ [Concomitant]
     Active Substance: ERGOCALCIFEROL
  3. BYDUREON [Suspect]
     Active Substance: EXENATIDE
     Indication: IMPAIRED FASTING GLUCOSE
     Dosage: 2 MG, QWK
     Route: 058
     Dates: start: 2012, end: 201406
  4. LISINOPRIL. [Concomitant]
     Active Substance: LISINOPRIL
  5. INDAPAMIDE. [Concomitant]
     Active Substance: INDAPAMIDE

REACTIONS (3)
  - Blood creatinine increased [Recovering/Resolving]
  - Pyrexia [Unknown]
  - Lymphadenopathy [Unknown]

NARRATIVE: CASE EVENT DATE: 201407
